FAERS Safety Report 14641937 (Version 2)
Quarter: 2019Q2

REPORT INFORMATION
  Report Type: Spontaneous
  Country: ME (occurrence: ME)
  Receive Date: 20180315
  Receipt Date: 20190604
  Transmission Date: 20190711
  Serious: Yes (Life-Threatening, Other)
  Sender: FDA-Public Use
  Company Number: ME-BAUSCH-BL-2018-006659

PATIENT
  Age: 56 Year
  Sex: Female

DRUGS (1)
  1. DICLOFENAC [Suspect]
     Active Substance: DICLOFENAC
     Indication: BACK PAIN
     Dosage: SLOW-RELEASE, FOR OVER 7 YEARS
     Route: 065

REACTIONS (4)
  - Gastrointestinal disorder [Unknown]
  - Large intestine erosion [Unknown]
  - Drug abuse [Unknown]
  - Large intestinal stenosis [Unknown]
